FAERS Safety Report 24664825 (Version 1)
Quarter: 2024Q4

REPORT INFORMATION
  Report Type: Spontaneous
  Country: CN (occurrence: CN)
  Receive Date: 20241126
  Receipt Date: 20241126
  Transmission Date: 20250114
  Serious: Yes (Hospitalization, Other)
  Sender: JIANGSU HANSOH PHARMACEUTICAL
  Company Number: CN-Jiangsu Hansoh Pharmaceutical Co., Ltd-2165963

PATIENT
  Age: 62 Year
  Sex: Female

DRUGS (3)
  1. MICAFUNGIN SODIUM [Suspect]
     Active Substance: MICAFUNGIN SODIUM
     Indication: Ureteritis
     Dates: start: 20241022, end: 20241104
  2. TIGECYCLINE [Suspect]
     Active Substance: TIGECYCLINE
     Dates: start: 20241021, end: 20241102
  3. DOXYCYCLINE HYDROCHLORIDE [Suspect]
     Active Substance: DOXYCYCLINE HYDROCHLORIDE
     Dates: start: 20241016, end: 20241102

REACTIONS (3)
  - Cholestasis [Recovering/Resolving]
  - Off label use [Unknown]
  - Drug-induced liver injury [Recovering/Resolving]

NARRATIVE: CASE EVENT DATE: 20241026
